FAERS Safety Report 5027402-7 (Version None)
Quarter: 2006Q2

REPORT INFORMATION
  Report Type: 
  Country: None (occurrence: None)
  Receive Date: 20060501
  Receipt Date: 20060215
  Transmission Date: 20061013
  Serious: No
  Sender: FDA-Public Use
  Company Number: 200610905BWH

PATIENT
  Age: 71 Year
  Sex: Female

DRUGS (5)
  1. NEXAVAR [Suspect]
     Indication: RENAL CELL CARCINOMA STAGE UNSPECIFIED
     Dosage: 400 MG, BID, ORAL
     Route: 048
     Dates: start: 20060201
  2. GLUCOVANCE [Concomitant]
  3. TEVETEN [Concomitant]
  4. CARTIA XT [Concomitant]
  5. XANAX [Concomitant]

REACTIONS (3)
  - HYPERTENSION [None]
  - PRURITUS [None]
  - SKIN BURNING SENSATION [None]
